FAERS Safety Report 6585468-7 (Version None)
Quarter: 2010Q1

REPORT INFORMATION
  Report Type: 
  Country: None (occurrence: None)
  Receive Date: 20100201
  Receipt Date: 20090427
  Transmission Date: 20100710
  Serious: Yes (Hospitalization)
  Sender: FDA-Public Use
  Company Number: 1-18268611

PATIENT
  Age: 56 Year
  Sex: Female

DRUGS (11)
  1. ALLOPURINOL [Suspect]
     Indication: GOUT
     Dosage: 100 MG, ORAL
     Route: 048
     Dates: start: 20070310, end: 20070401
  2. PENICILLIN [Suspect]
     Indication: PHARYNGITIS STREPTOCOCCAL
     Dates: start: 20070101
  3. BENICAR [Concomitant]
  4. DARVOCET-N (PROPOXYPHENE NAPSYLATE AND ACETAMINOPHEN) [Concomitant]
  5. EFFEXOR XR [Concomitant]
  6. FOLIC ACID [Concomitant]
  7. METHADONE HCL [Concomitant]
  8. NORVASC [Concomitant]
  9. PROCRIT SOLUTION [Concomitant]
  10. AMOXICILLIN [Concomitant]
  11. TYLENOL (CAPLET) [Concomitant]

REACTIONS (5)
  - ASTHENIA [None]
  - ERYTHEMA MULTIFORME [None]
  - NAUSEA [None]
  - RED MAN SYNDROME [None]
  - RENAL FAILURE [None]
